FAERS Safety Report 4396394-6 (Version None)
Quarter: 2004Q3

REPORT INFORMATION
  Report Type: 
  Country: None (occurrence: None)
  Receive Date: 20040708
  Receipt Date: 20040701
  Transmission Date: 20050211
  Serious: Yes (Hospitalization)
  Sender: FDA-Public Use
  Company Number: FRWYE868401JUL04

PATIENT
  Age: 62 Year
  Sex: Female

DRUGS (14)
  1. EFFEXOR [Suspect]
     Dosage: SEE IMAGE
     Route: 048
     Dates: start: 20040423, end: 20040425
  2. EFFEXOR [Suspect]
     Dosage: SEE IMAGE
     Route: 048
     Dates: start: 20040426, end: 20040426
  3. EFFEXOR [Suspect]
     Dosage: SEE IMAGE
     Route: 048
     Dates: start: 20040427, end: 20040505
  4. ATARAX [Suspect]
     Dosage: 25 MG 2X PER 1 DAY
     Route: 048
     Dates: start: 20040423, end: 20040503
  5. DI-ANTALVIC (DEXTROPROPOXYPHENE HYDROCHLORIDE/PARACETAMOL) [Suspect]
     Indication: BACK PAIN
     Dosage: 3.1 2 DOSE 3X PER 1 DAY
     Route: 048
     Dates: start: 20040430, end: 20040504
  6. MEPRONIZINE (ACEPROMETAZINE/MEPROBAMATE) [Suspect]
     Dosage: SEE IMAGE
     Route: 048
     Dates: start: 20040423, end: 20040501
  7. MEPRONIZINE (ACEPROMETAZINE/MEPROBAMATE) [Suspect]
     Dosage: SEE IMAGE
     Route: 048
     Dates: start: 20040501
  8. TERCIAN (CYAMEMAZINE) [Suspect]
     Dosage: SEE IMAGE
     Route: 048
     Dates: start: 20040423, end: 20040425
  9. TERCIAN (CYAMEMAZINE) [Suspect]
     Dosage: SEE IMAGE
     Route: 048
     Dates: start: 20040426, end: 20040428
  10. TERCIAN (CYAMEMAZINE) [Suspect]
     Dosage: SEE IMAGE
     Route: 048
     Dates: start: 20040429, end: 20040505
  11. TRANXENE [Suspect]
     Dosage: SEE IMAGE
     Route: 048
     Dates: start: 20040423, end: 20040502
  12. TRANXENE [Suspect]
     Dosage: SEE IMAGE
     Route: 048
     Dates: start: 20040503, end: 20040504
  13. TRANXENE [Suspect]
     Dosage: SEE IMAGE
     Route: 048
     Dates: start: 20040505, end: 20040514
  14. TRANXENE [Suspect]
     Dosage: SEE IMAGE
     Route: 048
     Dates: start: 20040515

REACTIONS (10)
  - ALANINE AMINOTRANSFERASE INCREASED [None]
  - ASPARTATE AMINOTRANSFERASE INCREASED [None]
  - BILIARY DILATATION [None]
  - BLOOD ALKALINE PHOSPHATASE INCREASED [None]
  - BLOOD AMYLASE INCREASED [None]
  - BLOOD TRIGLYCERIDES INCREASED [None]
  - CONDITION AGGRAVATED [None]
  - GAMMA-GLUTAMYLTRANSFERASE INCREASED [None]
  - HEPATOMEGALY [None]
  - LIPASE INCREASED [None]
